FAERS Safety Report 8887724 (Version 1)
Quarter: 2012Q4

REPORT INFORMATION
  Report Type: 
  Country: US (occurrence: US)
  Receive Date: 20121106
  Receipt Date: 20121106
  Transmission Date: 20130627
  Serious: No
  Sender: FDA-Public Use
  Company Number: US-VERTEX PHARMACEUTICAL INC.-2012-024027

PATIENT
  Age: 51 Year
  Sex: Male
  Weight: 82 kg

DRUGS (11)
  1. TELAPREVIR [Suspect]
     Indication: HEPATITIS C
     Dosage: 750 mg, tid
     Route: 048
     Dates: start: 20120926
  2. PEGASYS [Suspect]
     Indication: HEPATITIS C
     Dosage: 180 ?g, UNK
     Route: 058
     Dates: start: 20120926
  3. RIBAVIRIN [Suspect]
     Indication: HEPATITIS C
     Dosage: 400 mg, bid
     Route: 048
     Dates: start: 20120926
  4. TRAZODONE [Concomitant]
     Dosage: 50 mg, qd
     Route: 048
  5. FLEXERIL                           /00428402/ [Concomitant]
     Indication: BACK PAIN
     Dosage: 10 mg, qd
     Route: 048
  6. PROZAC [Concomitant]
     Indication: DEPRESSION
     Dosage: 80 mg, qd
     Route: 048
  7. ISENTRESS [Concomitant]
     Indication: HIV INFECTION
     Dosage: 400 mg, qd
     Route: 048
  8. TRUVADA [Concomitant]
     Indication: HIV INFECTION
  9. IBUPROFEN [Concomitant]
     Indication: BACK PAIN
     Dosage: 800 mg, qd
     Route: 048
  10. AMBIEN [Concomitant]
     Dosage: 10 mg, qd
     Route: 048
  11. NEURONTIN [Concomitant]
     Indication: PAIN
     Dosage: 300 mg, qd

REACTIONS (3)
  - Off label use [Unknown]
  - Diarrhoea [Recovered/Resolved]
  - Haemorrhoidal haemorrhage [Recovered/Resolved]
